FAERS Safety Report 23432680 (Version 1)
Quarter: 2024Q1

REPORT INFORMATION
  Report Type: Spontaneous
  Country: GB (occurrence: GB)
  Receive Date: 20240123
  Receipt Date: 20240123
  Transmission Date: 20240410
  Serious: Yes (Other)
  Sender: FDA-Public Use
  Company Number: None

PATIENT
  Age: 58 Year
  Weight: 50 kg

DRUGS (17)
  1. CLARITHROMYCIN [Suspect]
     Active Substance: CLARITHROMYCIN
     Indication: Product used for unknown indication
     Route: 065
     Dates: start: 20231222
  2. AMOXICILLIN [Concomitant]
     Active Substance: AMOXICILLIN
     Dosage: TIME INTERVAL: 0.33333333 DAYS
     Dates: start: 20240105
  3. BECLOMETHASONE DIPROPIONATE [Concomitant]
     Active Substance: BECLOMETHASONE DIPROPIONATE
     Dosage: TWO PUFFS
     Dates: start: 20231206, end: 20240103
  4. ESTRIOL [Concomitant]
     Active Substance: ESTRIOL
     Dosage: APPLY AT NIGHT FOR TWO TO THREE WEEKS THEN REDU...
     Dates: start: 20221115
  5. DOXYCYCLINE [Concomitant]
     Active Substance: DOXYCYCLINE
     Dosage: TWO NOW THEN ONE DAILY
     Dates: start: 20231115, end: 20231122
  6. ESTRADIOL [Concomitant]
     Active Substance: ESTRADIOL
     Dosage: APPLY
     Dates: start: 20221115
  7. HYDROXYCHLOROQUINE SULFATE [Concomitant]
     Active Substance: HYDROXYCHLOROQUINE SULFATE
     Dates: start: 20221115, end: 20231115
  8. PROGESTERONE [Concomitant]
     Active Substance: PROGESTERONE
     Dates: start: 20221115
  9. UNSPECIFIED INGREDIENT [Concomitant]
     Active Substance: UNSPECIFIED INGREDIENT
     Dosage: USE AS DIRECTED
     Dates: start: 20231109, end: 20231116
  10. UNSPECIFIED INGREDIENT [Concomitant]
     Active Substance: UNSPECIFIED INGREDIENT
     Dosage: USE AS DIRECTED
     Dates: start: 20231115
  11. FLUTICASONE FUROATE\VILANTEROL TRIFENATATE [Concomitant]
     Active Substance: FLUTICASONE FUROATE\VILANTEROL TRIFENATATE
     Dates: start: 20221115
  12. ESOMEPRAZOLE [Concomitant]
     Active Substance: ESOMEPRAZOLE
     Dates: start: 20221115
  13. ALBUTEROL [Concomitant]
     Active Substance: ALBUTEROL
     Dosage: TIME INTERVAL: AS NECESSARY: TWO DOSES UP TO FOUR TIMES A DAY AS NEEDED
     Dates: start: 20221115
  14. ESTRADIOL [Concomitant]
     Active Substance: ESTRADIOL
     Dosage: APPLY
     Dates: start: 20231218
  15. CALCIUM CARBONATE\CHOLECALCIFEROL [Concomitant]
     Active Substance: CALCIUM CARBONATE\CHOLECALCIFEROL
     Dates: start: 20230210
  16. METHOTREXATE [Concomitant]
     Active Substance: METHOTREXATE
     Dosage: INJECT THE CONTENTS OF ONE PRE-FILLED SYRINGE (...
     Dates: start: 20231115
  17. FOLIC ACID [Concomitant]
     Active Substance: FOLIC ACID
     Dosage: MTX PTS: TAKE ONE DAILY EXCEPT ON METHOTREXATE ...
     Dates: start: 20230718

REACTIONS (1)
  - Diarrhoea haemorrhagic [Recovered/Resolved]
